FAERS Safety Report 7352626-3 (Version None)
Quarter: 2011Q1

REPORT INFORMATION
  Report Type: 
  Country: None (occurrence: None)
  Receive Date: 20110301
  Receipt Date: 20100121
  Transmission Date: 20110831
  Serious: Yes (Hospitalization)
  Sender: FDA-Public Use
  Company Number: RB-01228-2010

PATIENT
  Age: 51 Year
  Sex: Male

DRUGS (4)
  1. SUBOXONE [Suspect]
     Indication: PAIN
     Dosage: (2 MG TID SUBLINGUAL), (2 MG TID SUBLINGUAL)
     Route: 060
     Dates: start: 20100117
  2. SUBOXONE [Suspect]
     Indication: PAIN
     Dosage: (2 MG TID SUBLINGUAL), (2 MG TID SUBLINGUAL)
     Route: 060
     Dates: start: 20080101, end: 20100101
  3. KLONOPIN [Concomitant]
  4. DESVENLAFAXINE [Concomitant]

REACTIONS (6)
  - DEPRESSION [None]
  - BLOOD CHOLESTEROL INCREASED [None]
  - DRUG WITHDRAWAL SYNDROME [None]
  - ERECTILE DYSFUNCTION [None]
  - BLOOD TESTOSTERONE DECREASED [None]
  - BLOOD GLUCOSE INCREASED [None]
